FAERS Safety Report 24036068 (Version 8)
Quarter: 2024Q4

REPORT INFORMATION
  Report Type: Spontaneous
  Country: CO (occurrence: CO)
  Receive Date: 20240701
  Receipt Date: 20241202
  Transmission Date: 20250115
  Serious: No
  Sender: PFIZER
  Company Number: CO-PFIZER INC-202400201740

PATIENT
  Age: 9 Year
  Sex: Male

DRUGS (1)
  1. GENOTROPIN [Suspect]
     Active Substance: SOMATROPIN
     Dosage: 1.2 MG, DAILY
     Route: 058

REACTIONS (5)
  - Device failure [Unknown]
  - Drug dose omission by device [Unknown]
  - Device mechanical issue [Unknown]
  - Device information output issue [Unknown]
  - Device leakage [Unknown]
